FAERS Safety Report 18456946 (Version 1)
Quarter: 2020Q4

REPORT INFORMATION
  Report Type: Spontaneous
  Country: IN (occurrence: IN)
  Receive Date: 20201103
  Receipt Date: 20201103
  Transmission Date: 20210114
  Serious: Yes (Hospitalization, Other)
  Sender: FDA-Public Use
  Company Number: IN-VIIV HEALTHCARE LIMITED-IN2020GSK210996

PATIENT
  Sex: Female

DRUGS (8)
  1. ZIDOVUDINE. [Suspect]
     Active Substance: ZIDOVUDINE
     Indication: HIV INFECTION
     Dosage: UNK
     Route: 064
  2. NEVIRAPINE. [Suspect]
     Active Substance: NEVIRAPINE
     Indication: PROPHYLAXIS AGAINST HIV INFECTION
     Dosage: UNK
     Route: 063
  3. LAMIVUDINE. [Suspect]
     Active Substance: LAMIVUDINE
     Indication: HIV INFECTION
     Dosage: UNK
     Route: 064
  4. ZIDOVUDINE. [Suspect]
     Active Substance: ZIDOVUDINE
     Dosage: UNK
  5. LAMIVUDINE. [Suspect]
     Active Substance: LAMIVUDINE
     Dosage: UNK
     Route: 063
  6. ZIDOVUDINE. [Suspect]
     Active Substance: ZIDOVUDINE
     Indication: PROPHYLAXIS AGAINST HIV INFECTION
     Dosage: UNK
     Route: 063
  7. NEVIRAPINE. [Suspect]
     Active Substance: NEVIRAPINE
     Indication: HIV INFECTION
     Dosage: UNK
     Route: 064
  8. NEVIRAPINE. [Suspect]
     Active Substance: NEVIRAPINE
     Dosage: UNK, SINGLE-DOSE AFTER BIRTH

REACTIONS (15)
  - Seizure [Unknown]
  - Pallor [Unknown]
  - Anion gap increased [Unknown]
  - Hypochromic anaemia [Unknown]
  - Electroencephalogram abnormal [Unknown]
  - Hepatomegaly [Unknown]
  - Foetal exposure during pregnancy [Unknown]
  - Exposure via breast milk [Unknown]
  - Metabolic encephalopathy [Unknown]
  - Metabolic acidosis [Unknown]
  - Premature baby [Unknown]
  - Respiration abnormal [Unknown]
  - Dystonia [Unknown]
  - Altered state of consciousness [Recovered/Resolved]
  - Mitochondrial toxicity [Unknown]
